FAERS Safety Report 22200169 (Version 1)
Quarter: 2023Q2

REPORT INFORMATION
  Report Type: Spontaneous
  Country: GB (occurrence: GB)
  Receive Date: 20230412
  Receipt Date: 20230412
  Transmission Date: 20230721
  Serious: Yes (Other)
  Sender: FDA-Public Use
  Company Number: GB-BAYER-2022A024657

PATIENT

DRUGS (1)
  1. XARELTO [Suspect]
     Active Substance: RIVAROXABAN
     Indication: Thrombosis prophylaxis
     Dosage: UNK
     Route: 048

REACTIONS (3)
  - Ileostomy [Unknown]
  - Post procedural pulmonary embolism [Unknown]
  - International normalised ratio abnormal [Unknown]
